FAERS Safety Report 7571180-4 (Version None)
Quarter: 2011Q2

REPORT INFORMATION
  Report Type: 
  Country: None (occurrence: None)
  Receive Date: 20110624
  Receipt Date: 20110616
  Transmission Date: 20111010
  Serious: Yes (Hospitalization, Other)
  Sender: FDA-Public Use
  Company Number: US-JNJFOC-20100704396

PATIENT
  Sex: Male
  Weight: 81.65 kg

DRUGS (3)
  1. RISPERDAL [Suspect]
     Indication: OBSESSIVE THOUGHTS
     Route: 048
     Dates: start: 20020901, end: 20070501
  2. RISPERDAL [Suspect]
     Indication: DEPRESSION
     Route: 048
     Dates: start: 20020901, end: 20070501
  3. INVEGA [Suspect]
     Indication: PRODUCT USED FOR UNKNOWN INDICATION
     Route: 048
     Dates: start: 20070501, end: 20090301

REACTIONS (4)
  - DIABETIC KETOACIDOSIS [None]
  - TYPE 2 DIABETES MELLITUS [None]
  - GYNAECOMASTIA [None]
  - PANCREATITIS [None]
